FAERS Safety Report 6754660-0 (Version None)
Quarter: 2010Q2

REPORT INFORMATION
  Report Type: 
  Country: None (occurrence: None)
  Receive Date: 20100524
  Receipt Date: 20100318
  Transmission Date: 20101027
  Serious: Yes (Hospitalization)
  Sender: FDA-Public Use
  Company Number: 009097

PATIENT
  Sex: Male
  Weight: 58.9 kg

DRUGS (4)
  1. CIMZIA [Suspect]
     Indication: CROHN'S DISEASE
     Dosage: 400 MG SUBCUTANEOUS
     Route: 058
     Dates: start: 20090827
  2. PREDNISONE [Concomitant]
  3. ACETAMINOPHEN [Concomitant]
  4. ENTOCORT EC [Concomitant]

REACTIONS (7)
  - CROHN'S DISEASE [None]
  - DRUG INEFFECTIVE [None]
  - DYSURIA [None]
  - PAIN [None]
  - PELVIC ABSCESS [None]
  - URINARY TRACT INFLAMMATION [None]
  - WEIGHT DECREASED [None]
